FAERS Safety Report 5748075-1 (Version None)
Quarter: 2008Q2

REPORT INFORMATION
  Report Type: 
  Country: None (occurrence: None)
  Receive Date: 20080523
  Receipt Date: 20080514
  Transmission Date: 20081010
  Serious: Yes (Life-Threatening, Hospitalization)
  Sender: FDA-Public Use
  Company Number: FR-ROCHE-564688

PATIENT
  Sex: Male

DRUGS (6)
  1. FANSIDAR [Suspect]
     Indication: DRUG USE FOR UNKNOWN INDICATION
     Dosage: GIVEN 4 DOSES DAILY.
     Route: 048
     Dates: start: 20080119, end: 20080121
  2. FANSIDAR [Suspect]
     Dosage: GIVEN 4 DOSES DAILY.
     Route: 048
     Dates: start: 20080119, end: 20080121
  3. DEPAKENE [Concomitant]
     Route: 048
     Dates: start: 20020601, end: 20080124
  4. CO ARINATE [Concomitant]
     Dosage: DRUG NAME: COARINATE.
     Dates: start: 20080119, end: 20080121
  5. CO ARINATE [Concomitant]
     Dosage: DRUG NAME: COARINATE.
     Dates: start: 20080119, end: 20080121
  6. CO ARINATE [Concomitant]
     Dosage: DRUG NAME: COARINATE.
     Dates: start: 20080119, end: 20080121

REACTIONS (3)
  - ACUTE HEPATIC FAILURE [None]
  - AGRANULOCYTOSIS [None]
  - HEPATITIS ACUTE [None]
